FAERS Safety Report 6589330-5 (Version None)
Quarter: 2010Q1

REPORT INFORMATION
  Report Type: 
  Country: None (occurrence: None)
  Receive Date: 20100218
  Receipt Date: 20100210
  Transmission Date: 20100710
  Serious: Yes (Other)
  Sender: FDA-Public Use
  Company Number: FR-BAXTER-2010BH003061

PATIENT
  Sex: Female

DRUGS (7)
  1. ENDOXAN BAXTER [Suspect]
     Indication: BREAST CANCER
     Route: 042
  2. FLUOROURACIL [Suspect]
     Indication: BREAST CANCER
     Route: 042
     Dates: start: 19970101, end: 19970101
  3. EPIRUBICIN HYDROCHLORIDE [Suspect]
     Indication: BREAST CANCER
     Route: 042
     Dates: start: 19970101, end: 19970101
  4. ONDANSETRON [Suspect]
     Indication: BREAST CANCER
     Route: 042
     Dates: start: 19970101, end: 19970101
  5. TAMOXIFEN GENERIC [Suspect]
     Indication: BREAST CANCER
     Route: 048
  6. AMAREL [Concomitant]
     Indication: DIABETES MELLITUS
     Route: 065
  7. METFORMIN HCL [Concomitant]
     Indication: DIABETES MELLITUS
     Route: 065

REACTIONS (1)
  - CONGESTIVE CARDIOMYOPATHY [None]
